FAERS Safety Report 18507860 (Version 3)
Quarter: 2021Q1

REPORT INFORMATION
  Report Type: Spontaneous
  Country: US (occurrence: US)
  Receive Date: 20201116
  Receipt Date: 20210119
  Transmission Date: 20210419
  Serious: Yes (Other)
  Sender: FDA-Public Use
  Company Number: US-PURDUE-USA-2020-0176672

PATIENT
  Sex: Male

DRUGS (10)
  1. OXYCONTIN [Suspect]
     Active Substance: OXYCODONE HYDROCHLORIDE
     Dosage: 300 TABLET, MONTHLY
     Route: 048
     Dates: start: 2006
  2. OXYCODONE HCL CR TABLETS (SIMILAR TO NDA 22?272) [Suspect]
     Active Substance: OXYCODONE HYDROCHLORIDE
     Indication: PAIN
     Dosage: UNK, UNK
     Route: 048
     Dates: start: 2000
  3. OXYCONTIN [Suspect]
     Active Substance: OXYCODONE HYDROCHLORIDE
     Dosage: 630 TABLET, MONTHLY
     Route: 048
     Dates: start: 2006
  4. TRAMADOL. [Suspect]
     Active Substance: TRAMADOL
     Indication: PAIN
     Dosage: UNK, UNK
     Route: 065
     Dates: start: 2000
  5. MS CONTIN [Suspect]
     Active Substance: MORPHINE SULFATE
     Indication: PAIN
     Dosage: UNK, UNK
     Route: 048
     Dates: start: 2000
  6. OXYCODONE HCL TABLETS (RHODES 91?490) [Suspect]
     Active Substance: OXYCODONE HYDROCHLORIDE
     Indication: PAIN
     Dosage: UNK, UNK
     Route: 048
     Dates: start: 2000
  7. BUPRENORPHINE (SIMILAR TO NDA 21?306) [Suspect]
     Active Substance: BUPRENORPHINE
     Indication: PAIN
     Dosage: UNK, UNK
     Route: 065
     Dates: start: 2000
  8. MORPHINE SULFATE EXTENDED?RELEASE TABLETS (RHODES 74?769) [Suspect]
     Active Substance: MORPHINE SULFATE
     Indication: PAIN
     Dosage: UNK, UNK
     Route: 048
     Dates: start: 2000
  9. OXYCONTIN [Suspect]
     Active Substance: OXYCODONE HYDROCHLORIDE
     Indication: PAIN
     Dosage: UNK, UNK
     Route: 048
     Dates: start: 2000
  10. OXYCODONE/ ACETAMINOPHEN TABLETS [Suspect]
     Active Substance: ACETAMINOPHEN\OXYCODONE HYDROCHLORIDE
     Indication: PAIN
     Dosage: UNK, UNK
     Route: 048
     Dates: start: 2000

REACTIONS (19)
  - Anxiety [Unknown]
  - Back injury [Unknown]
  - Neck injury [Unknown]
  - Overdose [Unknown]
  - Nervousness [Unknown]
  - Panic attack [Unknown]
  - Cardiac disorder [Unknown]
  - Memory impairment [Unknown]
  - Fall [Unknown]
  - Varicose vein [Unknown]
  - Drug dependence [Unknown]
  - Gait disturbance [Unknown]
  - Agitation [Unknown]
  - Restlessness [Unknown]
  - Depression [Unknown]
  - Respiratory disorder [Unknown]
  - Road traffic accident [Unknown]
  - Insomnia [Unknown]
  - Mental disorder [Unknown]
